FAERS Safety Report 4305651-0 (Version None)
Quarter: 2004Q1

REPORT INFORMATION
  Report Type: 
  Country: None (occurrence: None)
  Receive Date: 20040226
  Receipt Date: 20031229
  Transmission Date: 20041129
  Serious: No
  Sender: FDA-Public Use
  Company Number: US-BRISTOL-MYERS SQUIBB COMPANY-12466264

PATIENT
  Sex: Male

DRUGS (2)
  1. ABILIFY [Suspect]
  2. ZOLOFT [Concomitant]

REACTIONS (2)
  - AKATHISIA [None]
  - DISTURBANCE IN ATTENTION [None]
